FAERS Safety Report 22361775 (Version 1)
Quarter: 2023Q2

REPORT INFORMATION
  Report Type: Other
  Country: CN (occurrence: CN)
  Receive Date: 20230524
  Receipt Date: 20230524
  Transmission Date: 20230722
  Serious: Yes (Other)
  Sender: FDA-Public Use
  Company Number: CN-GE HEALTHCARE-2023CSU003941

PATIENT
  Age: 47 Year
  Sex: Male
  Weight: 65 kg

DRUGS (3)
  1. OMNIPAQUE [Suspect]
     Active Substance: IOHEXOL
     Indication: Computerised tomogram
     Dosage: 100 ML, SINGLE
     Route: 042
     Dates: start: 20230512, end: 20230512
  2. OMNIPAQUE [Suspect]
     Active Substance: IOHEXOL
     Indication: Pelvic neoplasm
  3. VISIPAQUE [Suspect]
     Active Substance: IODIXANOL
     Indication: Allergy test
     Dosage: 1 ML, SINGLE
     Route: 042
     Dates: start: 20230514, end: 20230514

REACTIONS (5)
  - Respiratory rate decreased [Recovered/Resolved]
  - Cold sweat [Recovered/Resolved]
  - Blood pressure decreased [Recovered/Resolved]
  - Heart rate decreased [Recovered/Resolved]
  - Dizziness [Recovered/Resolved]

NARRATIVE: CASE EVENT DATE: 20230514
